FAERS Safety Report 8174716-8 (Version None)
Quarter: 2012Q1

REPORT INFORMATION
  Report Type: 
  Country: None (occurrence: None)
  Receive Date: 20120229
  Receipt Date: 20120220
  Transmission Date: 20120608
  Serious: Yes (Life-Threatening)
  Sender: FDA-Public Use
  Company Number: JP-GLAXOSMITHKLINE-B0749070A

PATIENT
  Sex: Female

DRUGS (4)
  1. ZOLPIDEM [Concomitant]
     Indication: INSOMNIA
     Dosage: 5MG PER DAY
     Route: 048
  2. ROZEREM [Concomitant]
     Indication: INSOMNIA
     Dosage: 8MG PER DAY
     Route: 048
  3. PAXIL [Suspect]
     Indication: OBSESSIVE-COMPULSIVE DISORDER
     Dosage: 20MG PER DAY
     Route: 048
     Dates: start: 20110419, end: 20110601
  4. DORAL [Concomitant]
     Indication: INSOMNIA
     Dosage: 15MG PER DAY
     Route: 048

REACTIONS (4)
  - HAEMORRHAGIC DIATHESIS [None]
  - METRORRHAGIA [None]
  - PLATELET AGGREGATION DECREASED [None]
  - ANAEMIA [None]
